FAERS Safety Report 4690330-0 (Version None)
Quarter: 2005Q2

REPORT INFORMATION
  Report Type: 
  Country: None (occurrence: None)
  Receive Date: 20050615
  Receipt Date: 20050310
  Transmission Date: 20051028
  Serious: Yes (Hospitalization, Disabling)
  Sender: FDA-Public Use
  Company Number: US-MERCK-0503USA02320

PATIENT
  Age: 57 Year
  Sex: Male
  Weight: 118 kg

DRUGS (5)
  1. VIOXX [Suspect]
     Indication: ARTHRALGIA
     Route: 048
     Dates: start: 20000101, end: 20040925
  2. NEURONTIN [Concomitant]
     Route: 065
  3. VICODIN [Concomitant]
     Route: 065
  4. METHADONE HCL [Concomitant]
     Route: 065
  5. SYNTHROID [Concomitant]
     Indication: CHRONIC FATIGUE SYNDROME
     Route: 065
     Dates: start: 19920101

REACTIONS (5)
  - ANGINA UNSTABLE [None]
  - BLOOD CHOLESTEROL INCREASED [None]
  - CORONARY ARTERY DISEASE [None]
  - EMOTIONAL DISTRESS [None]
  - POST POLIO SYNDROME [None]
